FAERS Safety Report 18452041 (Version 1)
Quarter: 2020Q4

REPORT INFORMATION
  Report Type: Spontaneous
  Country: US (occurrence: US)
  Receive Date: 20201031
  Receipt Date: 20201031
  Transmission Date: 20210114
  Serious: No
  Sender: FDA-Public Use
  Company Number: None

PATIENT
  Age: 35 Year
  Sex: Female
  Weight: 56.25 kg

DRUGS (1)
  1. NEXPLANON [Suspect]
     Active Substance: ETONOGESTREL
     Dates: end: 20201024

REACTIONS (14)
  - Pain [None]
  - Hypoaesthesia [None]
  - Frequent bowel movements [None]
  - Mood swings [None]
  - Muscular weakness [None]
  - Abdominal pain [None]
  - Headache [None]
  - Dizziness [None]
  - Pain in extremity [None]
  - Pelvic pain [None]
  - Arthralgia [None]
  - Feeling hot [None]
  - Gait inability [None]
  - Infertility female [None]

NARRATIVE: CASE EVENT DATE: 20201025
